APPROVED DRUG PRODUCT: MICORT-HC
Active Ingredient: HYDROCORTISONE ACETATE
Strength: 2.5%
Dosage Form/Route: CREAM;TOPICAL
Application: A040396 | Product #001
Applicant: LEGACY PHARMA INC
Approved: Feb 27, 2001 | RLD: No | RS: No | Type: RX